FAERS Safety Report 4826360-5 (Version None)
Quarter: 2006Q1

REPORT INFORMATION
  Report Type: 
  Country: None (occurrence: None)
  Receive Date: 20051109
  Receipt Date: 20051024
  Transmission Date: 20060701
  Serious: Yes (Death, Hospitalization)
  Sender: FDA-Public Use
  Company Number: 2005-BP-16492RO

PATIENT
  Age: 68 Year
  Sex: Male
  Weight: 77.1 kg

DRUGS (18)
  1. DOLOPHINE HCL [Suspect]
     Indication: ALCOHOL WITHDRAWAL SYNDROME
     Dosage: PO
     Route: 048
     Dates: end: 20050201
  2. ALPRAZOLAM [Suspect]
     Indication: ANXIETY
     Dosage: PO
     Route: 048
     Dates: end: 20050215
  3. BIVALIRUDIN [Suspect]
     Dosage: SEE TEXT, IV
     Route: 042
     Dates: start: 20040720, end: 20040720
  4. ONDANSETRON HCL [Suspect]
     Indication: NAUSEA
     Dosage: PO
     Route: 048
     Dates: end: 20050215
  5. OMEPRAZOLE [Concomitant]
  6. QUINAPRIL [Concomitant]
  7. DILTIAZEM [Concomitant]
  8. WARFARIN SODIUM [Concomitant]
  9. HYDROXYZINE [Concomitant]
  10. INSULIN [Concomitant]
  11. METOCLOPRAMIDE [Concomitant]
  12. PANOCASE [Concomitant]
  13. QUININE [Concomitant]
  14. MIRTAZAPINE [Concomitant]
  15. LEVOTHYROXINE SODIUM [Concomitant]
  16. PENTOXIFYLLINE [Concomitant]
  17. TERAZOSIN HCL [Concomitant]
  18. SIMVASTATIN [Concomitant]

REACTIONS (5)
  - ANOXIC ENCEPHALOPATHY [None]
  - CARDIO-RESPIRATORY ARREST [None]
  - OVERDOSE [None]
  - PAIN [None]
  - SYNCOPE [None]
